FAERS Safety Report 4413137-8 (Version None)
Quarter: 2004Q3

REPORT INFORMATION
  Report Type: 
  Country: None (occurrence: None)
  Receive Date: 20040802
  Receipt Date: 20040707
  Transmission Date: 20050211
  Serious: Yes (Disabling)
  Sender: FDA-Public Use
  Company Number: US-MERCK-0407USA00650

PATIENT
  Age: 88 Year
  Sex: Male

DRUGS (4)
  1. MAXZIDE [Concomitant]
     Route: 065
  2. SYNTHROID [Concomitant]
     Route: 065
  3. VIOXX [Suspect]
     Indication: ARTHRITIS
     Route: 048
     Dates: start: 20040615, end: 20040601
  4. COUMADIN [Concomitant]
     Route: 065

REACTIONS (2)
  - ABASIA [None]
  - PAIN [None]
